FAERS Safety Report 6796328-0 (Version None)
Quarter: 2010Q2

REPORT INFORMATION
  Report Type: 
  Country: None (occurrence: None)
  Receive Date: 20100622
  Receipt Date: 20100615
  Transmission Date: 20101027
  Serious: Yes (Death)
  Sender: FDA-Public Use
  Company Number: 2010US002165

PATIENT
  Age: 6 Year
  Sex: Female

DRUGS (24)
  1. AMBISOME [Suspect]
     Indication: PNEUMONIA
     Dosage: 75 MG, UID/QD, IV DRIP; 100 MG, UID/QD, IV DRIP
     Route: 041
     Dates: start: 20100324, end: 20100406
  2. AMBISOME [Suspect]
     Indication: PNEUMONIA
     Dosage: 75 MG, UID/QD, IV DRIP; 100 MG, UID/QD, IV DRIP
     Route: 041
     Dates: start: 20100407, end: 20100411
  3. ZOSYN [Suspect]
     Indication: DRUG USE FOR UNKNOWN INDICATION
     Dosage: 9 MG, UID/QD, IV DRIP
     Route: 041
     Dates: start: 20100324, end: 20100406
  4. DORIBAX [Suspect]
     Indication: DRUG USE FOR UNKNOWN INDICATION
     Dosage: 0.5 MG, UID/QD, IV DRIP
     Route: 041
  5. TARGOCID [Suspect]
     Indication: DRUG USE FOR UNKNOWN INDICATION
     Dosage: 150 MG, UID/QD, IV DRIP
     Route: 041
  6. ASPARTATE POTASSIUM (ASPARTATE POTASSIUM) [Concomitant]
  7. NEO-MINOPHAGEN C (GLYCYRRHIZIC ACID, AMMONIUM SALT) [Concomitant]
  8. MIDAZOLAM HCL [Concomitant]
  9. PHENOBARBITAL TAB [Concomitant]
  10. MYSTAN (CLOBAZAM) [Concomitant]
  11. DEPAKENE [Concomitant]
  12. MEILAX (ETHYL LOFLAZEPATE) [Concomitant]
  13. MUCODYNE (CARBOCISTEINE) [Concomitant]
  14. MUCOSOLVAN (AMBROXOL HYDROCHLORIDE) [Concomitant]
  15. ONON (PRANLUKAST) [Concomitant]
  16. SODIUM BROMIDE (SODIUM BROMIDE) [Concomitant]
  17. CATAPRES [Concomitant]
  18. GABAPEN (GABAPENTIN) [Concomitant]
  19. TANNALBIN (ALBUMIN TANNATE) [Concomitant]
  20. ERYTHROCIN W (ERYTHROMYCIN ETHYLSUCCINATE) [Concomitant]
  21. BIOFERMIN R (STREPTOCOCCUS FAECALIS) [Concomitant]
  22. ADSORBIN (ALUMINIUM SILICATE) [Concomitant]
  23. PULMICORT RESPULES (BUDESONIDE) INHALATION [Concomitant]
  24. COTRIM [Concomitant]

REACTIONS (5)
  - CARDIAC ARREST [None]
  - ILEUS PARALYTIC [None]
  - OXYGEN SATURATION DECREASED [None]
  - PANCREATITIS ACUTE [None]
  - SHOCK [None]
